FAERS Safety Report 7222213-6 (Version None)
Quarter: 2011Q1

REPORT INFORMATION
  Report Type: 
  Country: None (occurrence: None)
  Receive Date: 20110103
  Receipt Date: 20101222
  Transmission Date: 20110831
  Serious: Yes (Hospitalization)
  Sender: FDA-Public Use
  Company Number: 2010SP063093

PATIENT
  Age: 63 Year
  Weight: 79.5 kg

DRUGS (7)
  1. TEMOZOLOMIDE [Suspect]
     Indication: GLIOBLASTOMA MULTIFORME
     Dosage: 140 MG;QD; 140 MG;QD
     Dates: start: 20100623, end: 20100714
  2. TEMOZOLOMIDE [Suspect]
     Indication: GLIOBLASTOMA MULTIFORME
     Dosage: 140 MG;QD; 140 MG;QD
     Dates: start: 20100903, end: 20101025
  3. FUROSEMIDE [Concomitant]
  4. RABEPRAZOLE SODIUM [Concomitant]
  5. ENOXAPARIN SODIUM [Concomitant]
  6. ACETAMINOPHEN [Concomitant]
  7. LEVETIRACETAM [Concomitant]

REACTIONS (3)
  - PERICARDIAL EFFUSION [None]
  - PULMONARY INFARCTION [None]
  - PULMONARY EMBOLISM [None]
